FAERS Safety Report 23334595 (Version 1)
Quarter: 2023Q4

REPORT INFORMATION
  Report Type: Other
  Country: US (occurrence: US)
  Receive Date: 20231224
  Receipt Date: 20231224
  Transmission Date: 20240110
  Serious: No
  Sender: FDA-Public Use
  Company Number: US-TRAVERE-2023TVT00556

PATIENT
  Age: 5 Year
  Sex: Female

DRUGS (9)
  1. CHOLBAM [Suspect]
     Active Substance: CHOLIC ACID
     Indication: Lipid metabolism disorder
     Dosage: 150 MG / AS DIRECTED
     Route: 048
     Dates: start: 20220226
  2. ALBUTEROL [Concomitant]
     Active Substance: ALBUTEROL
  3. FAMOTIDINE [Concomitant]
     Active Substance: FAMOTIDINE
  4. FLONASE [Concomitant]
     Active Substance: FLUTICASONE PROPIONATE
  5. LEVETIRACETAM [Concomitant]
     Active Substance: LEVETIRACETAM
  6. LEVOCARNITINE [Concomitant]
     Active Substance: LEVOCARNITINE
  7. PROBIOTICS NOS [Concomitant]
     Active Substance: PROBIOTICS NOS
  8. ZINC [Concomitant]
     Active Substance: PYRITHIONE ZINC\ZINC\ZINC CHLORIDE
  9. POLYETHYLENE GLYCOL [Concomitant]
     Active Substance: POLYETHYLENE GLYCOL

REACTIONS (2)
  - Cough [Unknown]
  - Chest discomfort [Unknown]
